FAERS Safety Report 9137468 (Version 2)
Quarter: 2013Q1

REPORT INFORMATION
  Report Type: Spontaneous
  Country: US (occurrence: US)
  Receive Date: 20130304
  Receipt Date: 20130307
  Transmission Date: 20140127
  Serious: Yes (Hospitalization, Other)
  Sender: FDA-Public Use
  Company Number: US-BRISTOL-MYERS SQUIBB COMPANY-17408592

PATIENT
  Age: 60 Year
  Sex: Female

DRUGS (1)
  1. ABATACEPT SUBQ INJECTION 125MG/ML [Suspect]
     Indication: RHEUMATOID ARTHRITIS
     Dosage: LAST INJECTION WAS ON 15FEB2013
     Route: 058
     Dates: start: 20130125

REACTIONS (4)
  - Diarrhoea [Unknown]
  - Vomiting [Unknown]
  - Rib fracture [Unknown]
  - Drug ineffective [Unknown]
